FAERS Safety Report 9203279 (Version 1)
Quarter: 2013Q1

REPORT INFORMATION
  Report Type: Spontaneous
  Country: DE (occurrence: None)
  Receive Date: 20130327
  Receipt Date: 20130327
  Transmission Date: 20140127
  Serious: Yes (Hospitalization, Other)
  Sender: FDA-Public Use
  Company Number: E2B_00000597

PATIENT
  Sex: Male

DRUGS (3)
  1. LAMOTRIGINE [Suspect]
     Indication: DEPRESSION
     Route: 048
     Dates: start: 201206
  2. MAPROTILINE [Suspect]
     Route: 048
     Dates: start: 201206
  3. HOMEOPATICS NOS [Concomitant]

REACTIONS (1)
  - Erythema multiforme [None]
